FAERS Safety Report 7178367-3 (Version None)
Quarter: 2010Q4

REPORT INFORMATION
  Report Type: 
  Country: None (occurrence: None)
  Receive Date: 20101220
  Receipt Date: 20101207
  Transmission Date: 20110411
  Serious: Yes (Hospitalization)
  Sender: FDA-Public Use
  Company Number: US-ELI_LILLY_AND_COMPANY-US201012002368

PATIENT
  Sex: Female

DRUGS (1)
  1. PROZAC WEEKLY [Suspect]
     Dosage: 90 MG, 4/W

REACTIONS (2)
  - HOSPITALISATION [None]
  - OVERDOSE [None]
